FAERS Safety Report 20414753 (Version 1)
Quarter: 2022Q1

REPORT INFORMATION
  Report Type: Spontaneous
  Country: IT (occurrence: IT)
  Receive Date: 20220202
  Receipt Date: 20220202
  Transmission Date: 20220424
  Serious: Yes (Other)
  Sender: FDA-Public Use
  Company Number: IT-CELLTRION INC.-2022IT000735

PATIENT

DRUGS (5)
  1. RITUXIMAB [Suspect]
     Active Substance: RITUXIMAB
     Indication: Non-Hodgkin^s lymphoma
     Dosage: UNK
  2. CYCLOPHOSPHAMIDE [Concomitant]
     Active Substance: CYCLOPHOSPHAMIDE
     Indication: Non-Hodgkin^s lymphoma
     Dosage: UNK
  3. PREDNISONE [Concomitant]
     Active Substance: PREDNISONE
     Indication: Non-Hodgkin^s lymphoma
     Dosage: 40 MG/M2 FOR 5 DAYS AT EACH CYCLE
  4. VINCRISTINE [Concomitant]
     Active Substance: VINCRISTINE
     Indication: Non-Hodgkin^s lymphoma
     Dosage: UNK
  5. DOXORUBICIN HYDROCHLORIDE [Concomitant]
     Active Substance: DOXORUBICIN HYDROCHLORIDE
     Indication: Non-Hodgkin^s lymphoma
     Dosage: UNK

REACTIONS (2)
  - Disease recurrence [Unknown]
  - Kaposi^s sarcoma AIDS related [Unknown]
